FAERS Safety Report 8687774 (Version 3)
Quarter: 2012Q4

REPORT INFORMATION
  Report Type: Spontaneous
  Country: US (occurrence: None)
  Receive Date: 20120711
  Receipt Date: 20121102
  Transmission Date: 20130627
  Serious: Yes (Other)
  Sender: FDA-Public Use
  Company Number: 1206-284

PATIENT
  Age: 87 Year
  Sex: Male

DRUGS (3)
  1. EYLEA [Suspect]
     Indication: MACULAR DEGENERATION
     Dosage: INTRAVITREAL
     Dates: start: 20120202
  2. COUMADIN [Concomitant]
  3. ASPIRIN [Concomitant]

REACTIONS (1)
  - Retinal haemorrhage [None]
